FAERS Safety Report 5014342-2 (Version None)
Quarter: 2006Q2

REPORT INFORMATION
  Report Type: 
  Country: None (occurrence: None)
  Receive Date: 20060411
  Receipt Date: 20041220
  Transmission Date: 20061013
  Serious: No
  Sender: FDA-Public Use
  Company Number: A03200600867

PATIENT
  Age: 48 Year
  Sex: Male

DRUGS (6)
  1. UROXATRAL [Suspect]
     Indication: BENIGN PROSTATIC HYPERPLASIA
     Dosage: ORAL
     Route: 048
     Dates: start: 20041101
  2. CAPTOPRIL [Concomitant]
  3. ALPRAZOLAM [Concomitant]
  4. GLIPIZIDE [Concomitant]
  5. BETA BLOCKER [Concomitant]
  6. FUROSEMIDE [Concomitant]

REACTIONS (1)
  - DYSGEUSIA [None]
